FAERS Safety Report 13079928 (Version 2)
Quarter: 2017Q1

REPORT INFORMATION
  Report Type: Spontaneous
  Country: US (occurrence: US)
  Receive Date: 20170103
  Receipt Date: 20170123
  Transmission Date: 20170428
  Serious: No
  Sender: FDA-Public Use
  Company Number: ALCN2016US009844

PATIENT
  Sex: Female
  Weight: 70.3 kg

DRUGS (2)
  1. TIMOLOL GFS [Suspect]
     Active Substance: TIMOLOL MALEATE
     Indication: INTRAOCULAR PRESSURE INCREASED
     Dosage: 1 GTT, QD
     Route: 047
  2. TRAVATAN Z [Concomitant]
     Active Substance: TRAVOPROST
     Indication: INTRAOCULAR PRESSURE INCREASED
     Route: 047

REACTIONS (6)
  - Feeling abnormal [Unknown]
  - Incorrect dose administered [Unknown]
  - Liquid product physical issue [Unknown]
  - Nervousness [Unknown]
  - Vision blurred [Unknown]
  - Nausea [Unknown]
